FAERS Safety Report 8860712 (Version 1)
Quarter: 2012Q4

REPORT INFORMATION
  Report Type: 
  Country: US (occurrence: US)
  Receive Date: 20121025
  Receipt Date: 20121025
  Transmission Date: 20130627
  Serious: No
  Sender: FDA-Public Use
  Company Number: US-ASTRAZENECA-2012SE79329

PATIENT
  Age: 80 Year
  Sex: Female
  Weight: 63.5 kg

DRUGS (4)
  1. SYMBICORT [Suspect]
     Dosage: 80/4.5 ONE PUFF BID
     Route: 055
  2. OXYCODONE [Concomitant]
     Indication: PAIN
  3. CITALOPRAM [Concomitant]
     Indication: DEPRESSION
  4. TRAZODONE [Concomitant]
     Indication: SLEEP DISORDER

REACTIONS (3)
  - Lacrimation increased [Unknown]
  - Hypoaesthesia [Unknown]
  - Intentional drug misuse [Unknown]
